FAERS Safety Report 23903495 (Version 4)
Quarter: 2024Q3

REPORT INFORMATION
  Report Type: Report from Study
  Country: US (occurrence: US)
  Receive Date: 20240527
  Receipt Date: 20240826
  Transmission Date: 20241016
  Serious: Yes (Other)
  Sender: AMGEN
  Company Number: US-AMGEN-USASL2024082771

PATIENT
  Age: 44 Year
  Sex: Female
  Weight: 73.4 kg

DRUGS (14)
  1. NPLATE [Suspect]
     Active Substance: ROMIPLOSTIM
     Indication: Immune thrombocytopenia
     Dosage: 250 MICROGRAM, 0.5 ML (500 MCG/ML) SINGLE-USE VIAL
     Route: 058
  2. NPLATE [Suspect]
     Active Substance: ROMIPLOSTIM
     Indication: Haemolytic anaemia
     Dosage: 225 MICROGRAM  IN STERILE WATER (PF) 0.45 ML INJECTION
     Route: 058
  3. RUXIENCE [Concomitant]
     Active Substance: RITUXIMAB-PVVR
     Indication: Product used for unknown indication
     Dosage: 700 MILLIGRAM IN SODIUM CHLORIDE 0.9%
     Route: 042
  4. ZYRTEC [Concomitant]
     Active Substance: CETIRIZINE HYDROCHLORIDE
     Indication: Product used for unknown indication
     Dosage: 10 MILLIGRAM
     Route: 048
  5. SODIUM CHLORIDE [Concomitant]
     Active Substance: SODIUM CHLORIDE
     Indication: Product used for unknown indication
     Dosage: 0.9% SODIUM CHLORIDE INFUSION
     Route: 042
     Dates: end: 20240816
  6. TYLENOL [Concomitant]
     Active Substance: ACETAMINOPHEN
     Indication: Product used for unknown indication
     Dosage: 650 MILLIGRAM
     Route: 048
  7. SOLU-MEDROL [Concomitant]
     Active Substance: METHYLPREDNISOLONE SODIUM SUCCINATE
     Indication: Product used for unknown indication
     Dosage: 40 MILLIGRAM
     Route: 042
  8. RITUXAN [Concomitant]
     Active Substance: RITUXIMAB
     Indication: Product used for unknown indication
     Dosage: UNK
     Route: 065
  9. BENADRYL [Concomitant]
     Active Substance: DIPHENHYDRAMINE HYDROCHLORIDE
     Dosage: UNK (25 MG)
     Dates: start: 20240816, end: 20240816
  10. DEMEROL [Concomitant]
     Active Substance: MEPERIDINE HYDROCHLORIDE
     Dosage: UNK (25 MG)
     Dates: start: 20240816, end: 20240816
  11. SOLU-CORTEF [Concomitant]
     Active Substance: HYDROCORTISONE SODIUM SUCCINATE
     Dosage: UNK (100 MG)
     Dates: start: 20240816, end: 20240816
  12. PEPCID [Concomitant]
     Active Substance: FAMOTIDINE
     Dosage: UNK (20 MG)
     Dates: start: 20240816, end: 20240816
  13. EPIPEN [Concomitant]
     Active Substance: EPINEPHRINE
     Dosage: UNK (0.3 MG)
     Dates: start: 20240816, end: 20240816
  14. PROVENTIL [Concomitant]
     Active Substance: ALBUTEROL
     Dosage: (2.5 MG/3 ML)

REACTIONS (4)
  - Syncope [Unknown]
  - Dizziness [Recovering/Resolving]
  - Hypotension [Unknown]
  - Sinus headache [Not Recovered/Not Resolved]
